FAERS Safety Report 4876572-X (Version None)
Quarter: 2005Q4

REPORT INFORMATION
  Report Type: 
  Country: None (occurrence: None)
  Receive Date: 20051206
  Receipt Date: 20051101
  Transmission Date: 20060501
  Serious: Yes (Hospitalization)
  Sender: FDA-Public Use
  Company Number: USA0508106822

PATIENT
  Age: 78 Year
  Sex: Male

DRUGS (10)
  1. CYMBALTA [Suspect]
     Indication: PAIN
     Dosage: 60 MG DAY
     Dates: start: 20050809
  2. PLAVIX [Concomitant]
  3. NITRO (GLYCERYL TRINITRATE) [Concomitant]
  4. COREG (CAVEDILOL) [Concomitant]
  5. LANOXIN [Concomitant]
  6. ZETIA [Concomitant]
  7. LESCOL [Concomitant]
  8. AMLODIPINE W/BENAZEPRIL [Concomitant]
  9. ASPIRIN [Concomitant]
  10. COUMADIN [Concomitant]

REACTIONS (5)
  - ABNORMAL DREAMS [None]
  - DIZZINESS [None]
  - DYSPNOEA [None]
  - HEART RATE IRREGULAR [None]
  - VISION BLURRED [None]
